FAERS Safety Report 19250308 (Version 2)
Quarter: 2021Q3

REPORT INFORMATION
  Report Type: Spontaneous
  Country: FR (occurrence: FR)
  Receive Date: 20210512
  Receipt Date: 20210922
  Transmission Date: 20211014
  Serious: Yes (Other)
  Sender: FDA-Public Use
  Company Number: FR-009507513-2105FRA001483

PATIENT
  Age: 61 Year
  Sex: Female

DRUGS (2)
  1. BCG LIVE [Suspect]
     Active Substance: BACILLUS CALMETTE-GUERIN SUBSTRAIN TICE LIVE ANTIGEN
     Indication: BLADDER CANCER
     Dosage: UNK
     Route: 043
     Dates: start: 2008
  2. BCG LIVE [Suspect]
     Active Substance: BACILLUS CALMETTE-GUERIN SUBSTRAIN TICE LIVE ANTIGEN
     Indication: BLADDER CANCER RECURRENT
     Dosage: SECOND COURSE TO TREAT RECCURENCE OF NON INVASIVE BLADDER CANCER
     Route: 043
     Dates: start: 2011

REACTIONS (1)
  - Systemic sclerosis pulmonary [Recovered/Resolved]

NARRATIVE: CASE EVENT DATE: 201205
